FAERS Safety Report 8995916 (Version 1)
Quarter: 2013Q1

REPORT INFORMATION
  Report Type: Spontaneous
  Country: US (occurrence: US)
  Receive Date: 20130103
  Receipt Date: 20130103
  Transmission Date: 20140127
  Serious: No
  Sender: FDA-Public Use
  Company Number: US-ASTRAZENECA-2012SE96030

PATIENT
  Age: 42 Year
  Sex: Female

DRUGS (4)
  1. CRESTOR [Suspect]
     Route: 048
  2. ASPIRIN [Suspect]
     Route: 048
  3. TRICOR [Concomitant]
  4. MEVACOR [Concomitant]

REACTIONS (6)
  - Essential hypertension [Unknown]
  - Dyspnoea [Unknown]
  - Pernicious anaemia [Unknown]
  - Blood cholesterol increased [Unknown]
  - Nausea [Unknown]
  - Vomiting [Unknown]
